FAERS Safety Report 12202457 (Version 1)
Quarter: 2016Q1

REPORT INFORMATION
  Report Type: Spontaneous
  Country: US (occurrence: US)
  Receive Date: 20160322
  Receipt Date: 20160322
  Transmission Date: 20160526
  Serious: Yes (Other)
  Sender: FDA-Public Use
  Company Number: US-SA-2016SA058195

PATIENT
  Age: 55 Year
  Sex: Female

DRUGS (1)
  1. AUBAGIO [Suspect]
     Active Substance: TERIFLUNOMIDE
     Indication: MULTIPLE SCLEROSIS
     Dosage: STRENGTH- 14 MG
     Route: 048

REACTIONS (4)
  - Foot fracture [Unknown]
  - Depressed mood [Unknown]
  - Fall [Unknown]
  - Decreased interest [Unknown]

NARRATIVE: CASE EVENT DATE: 201602
